FAERS Safety Report 18333075 (Version 2)
Quarter: 2020Q4

REPORT INFORMATION
  Report Type: Report from Study
  Country: IL (occurrence: IL)
  Receive Date: 20201001
  Receipt Date: 20201026
  Transmission Date: 20210113
  Serious: Yes (Other)
  Sender: FDA-Public Use
  Company Number: IL-TEVA-2020-IL-1833198

PATIENT
  Age: 52 Year
  Sex: Female

DRUGS (1)
  1. COPAXONE [Suspect]
     Active Substance: GLATIRAMER ACETATE
     Route: 058
     Dates: start: 20150915

REACTIONS (7)
  - Injection site pain [Not Recovered/Not Resolved]
  - Immediate post-injection reaction [Unknown]
  - Injection site erythema [Not Recovered/Not Resolved]
  - Product substitution issue [Unknown]
  - Fear of injection [Unknown]
  - Type 1 diabetes mellitus [Not Recovered/Not Resolved]
  - Tremor [Unknown]

NARRATIVE: CASE EVENT DATE: 2018
